FAERS Safety Report 21147568 (Version 1)
Quarter: 2022Q3

REPORT INFORMATION
  Report Type: Spontaneous
  Country: US (occurrence: None)
  Receive Date: 20220728
  Receipt Date: 20220728
  Transmission Date: 20221027
  Serious: Yes (Hospitalization)
  Sender: FDA-Public Use
  Company Number: None

PATIENT
  Age: 64 Year
  Sex: Female

DRUGS (1)
  1. CAPECITABINE [Suspect]
     Active Substance: CAPECITABINE
     Dosage: 1500 MG BID ORAL
     Route: 048
     Dates: start: 2022

REACTIONS (5)
  - Diarrhoea [None]
  - Fall [None]
  - Dehydration [None]
  - Blood potassium decreased [None]
  - Therapy interrupted [None]

NARRATIVE: CASE EVENT DATE: 20220723
